FAERS Safety Report 20298593 (Version 1)
Quarter: 2022Q1

REPORT INFORMATION
  Report Type: Spontaneous
  Country: US (occurrence: None)
  Receive Date: 20220104
  Receipt Date: 20220104
  Transmission Date: 20220423
  Serious: No
  Sender: FDA-Public Use
  Company Number: None

PATIENT
  Age: 40 Year
  Sex: Female

DRUGS (1)
  1. CAPECITABINE [Suspect]
     Active Substance: CAPECITABINE
     Indication: Breast cancer
     Dosage: FREQUENCY : TWICE A DAY;?
     Route: 048
     Dates: start: 202106, end: 202111

REACTIONS (5)
  - Nausea [None]
  - Vomiting [None]
  - Hepatic enzyme abnormal [None]
  - Malignant neoplasm progression [None]
  - Therapy interrupted [None]

NARRATIVE: CASE EVENT DATE: 20210901
